FAERS Safety Report 5654457-9 (Version None)
Quarter: 2008Q1

REPORT INFORMATION
  Report Type: 
  Country: None (occurrence: None)
  Receive Date: 20080305
  Receipt Date: 20080220
  Transmission Date: 20080703
  Serious: No
  Sender: FDA-Public Use
  Company Number: 002#2#2007-00311

PATIENT
  Age: 73 Year
  Sex: Male
  Weight: 90.7194 kg

DRUGS (5)
  1. NEUPRO [Suspect]
     Indication: PARKINSON'S DISEASE
     Dosage: 6MG/24H, 1 IN 1 D, TRANSDERMAL
     Route: 062
     Dates: start: 20071108
  2. NEUPRO-PATCH [Suspect]
     Dosage: 4 MG/24H, 1 IN 1 D, TRANSDERMAL
     Route: 062
  3. CARBIDOPA [Concomitant]
  4. GAMMAGARD [Concomitant]
  5. DOXYCYCLINE HYCLATE [Concomitant]

REACTIONS (1)
  - PHARMACEUTICAL PRODUCT COMPLAINT [None]
